FAERS Safety Report 8305596-5 (Version None)
Quarter: 2012Q2

REPORT INFORMATION
  Report Type: 
  Country: None (occurrence: None)
  Receive Date: 20120423
  Receipt Date: 20120420
  Transmission Date: 20120825
  Serious: Yes (Death)
  Sender: FDA-Public Use
  Company Number: PHHO2012TR006004

PATIENT
  Sex: Female
  Weight: 40 kg

DRUGS (2)
  1. AFINITOR [Suspect]
     Indication: NEUROENDOCRINE TUMOUR
     Dosage: 10 MG, QD
     Route: 048
     Dates: start: 20110620, end: 20120303
  2. SOMATOSTATIN [Concomitant]
     Indication: NEUROENDOCRINE TUMOUR
     Dosage: 20 UG, UNK
     Route: 030
     Dates: start: 20100223, end: 20120213

REACTIONS (2)
  - SEPTIC SHOCK [None]
  - DISSEMINATED INTRAVASCULAR COAGULATION [None]
